FAERS Safety Report 17090055 (Version 2)
Quarter: 2019Q4

REPORT INFORMATION
  Report Type: Report from Study
  Country: None (occurrence: CO)
  Receive Date: 20191129
  Receipt Date: 20191230
  Transmission Date: 20200122
  Serious: Yes (Hospitalization)
  Sender: FDA-Public Use
  Company Number: CO-ABBVIE-19K-036-3175173-00

PATIENT
  Age: 62 Year
  Sex: Female
  Weight: 74 kg

DRUGS (2)
  1. HUMIRA [Suspect]
     Active Substance: ADALIMUMAB
     Indication: PSORIASIS
     Route: 058
     Dates: start: 20140828
  2. HUMIRA [Suspect]
     Active Substance: ADALIMUMAB
     Indication: PSORIASIS
     Route: 058
     Dates: end: 20191107

REACTIONS (10)
  - Urinary tract infection [Recovered/Resolved]
  - Dizziness [Unknown]
  - Nephritis [Recovered/Resolved]
  - Stomatitis [Recovered/Resolved]
  - Cold sweat [Unknown]
  - Psoriasis [Unknown]
  - Pyrexia [Recovered/Resolved]
  - Vaginal ulceration [Recovered/Resolved]
  - Weight increased [Recovered/Resolved]
  - Back pain [Recovered/Resolved]

NARRATIVE: CASE EVENT DATE: 201911
